FAERS Safety Report 21216082 (Version 3)
Quarter: 2022Q4

REPORT INFORMATION
  Report Type: Report from Study
  Country: DE (occurrence: DE)
  Receive Date: 20220816
  Receipt Date: 20221220
  Transmission Date: 20230113
  Serious: Yes (Hospitalization, Other)
  Sender: FDA-Public Use
  Company Number: DE-MYLANLABS-2022M1084787

PATIENT
  Sex: Male

DRUGS (16)
  1. METHOTREXATE [Suspect]
     Active Substance: METHOTREXATE
     Indication: Rheumatoid arthritis
     Dosage: 10 MILLIGRAM (T0)
     Route: 065
     Dates: start: 20110511
  2. METHOTREXATE [Suspect]
     Active Substance: METHOTREXATE
     Dosage: 10 MILLIGRAM (T1)
     Route: 065
     Dates: start: 20110928
  3. METHOTREXATE [Suspect]
     Active Substance: METHOTREXATE
     Dosage: 10 MILLIGRAM (T2)
     Route: 065
     Dates: start: 20120117
  4. METHOTREXATE [Suspect]
     Active Substance: METHOTREXATE
     Dosage: 10 MILLIGRAM (T3)
     Route: 065
     Dates: start: 20120604
  5. METHOTREXATE [Suspect]
     Active Substance: METHOTREXATE
     Dosage: 10 MILLIGRAM (T4)
     Route: 065
     Dates: start: 20121002
  6. METHOTREXATE [Suspect]
     Active Substance: METHOTREXATE
     Dosage: 10 MILLIGRAM (T6)
     Route: 065
     Dates: start: 20131030
  7. METHOTREXATE [Suspect]
     Active Substance: METHOTREXATE
     Dosage: 10 MILLIGRAM (T7)
     Route: 065
     Dates: start: 20140624
  8. METHOTREXATE [Suspect]
     Active Substance: METHOTREXATE
     Dosage: 10 MILLIGRAM (T8)
     Route: 065
     Dates: start: 20150106
  9. METHOTREXATE [Suspect]
     Active Substance: METHOTREXATE
     Dosage: 10 MILLIGRAM (T9)
     Route: 065
     Dates: start: 20150512
  10. METHOTREXATE [Suspect]
     Active Substance: METHOTREXATE
     Dosage: 10 MILLIGRAM (T11)
     Route: 065
     Dates: start: 20160531
  11. METHOTREXATE [Suspect]
     Active Substance: METHOTREXATE
     Dosage: 10 MILLIGRAM (T12)
     Route: 065
     Dates: start: 20170118
  12. METHOTREXATE [Suspect]
     Active Substance: METHOTREXATE
     Dosage: 10 MILLIGRAM (T13)
     Route: 065
     Dates: start: 20170705
  13. METHOTREXATE [Suspect]
     Active Substance: METHOTREXATE
     Dosage: 10 MILLIGRAM (T14)
     Route: 065
     Dates: start: 20180115
  14. METHOTREXATE [Suspect]
     Active Substance: METHOTREXATE
     Dosage: 10 MILLIGRAM (T16)
     Route: 065
     Dates: start: 20180917
  15. METHOTREXATE [Suspect]
     Active Substance: METHOTREXATE
     Dosage: 10 MILLIGRAM (T17)
     Route: 065
     Dates: start: 20190418
  16. METHOTREXATE [Suspect]
     Active Substance: METHOTREXATE
     Dosage: 10 MILLIGRAM (T18)
     Route: 065
     Dates: start: 20191015

REACTIONS (8)
  - Urethral obstruction [Recovered/Resolved]
  - Benign prostatic hyperplasia [Recovered/Resolved]
  - Cellulitis [Not Recovered/Not Resolved]
  - Epididymitis [Recovered/Resolved]
  - Rheumatoid nodule [Recovered/Resolved]
  - Hand repair operation [Recovered/Resolved]
  - Influenza like illness [Unknown]
  - Bronchitis [Recovered/Resolved]

NARRATIVE: CASE EVENT DATE: 20170215
